FAERS Safety Report 10284364 (Version 1)
Quarter: 2014Q3

REPORT INFORMATION
  Report Type: Spontaneous
  Country: CN (occurrence: None)
  Receive Date: 20140703
  Receipt Date: 20140703
  Transmission Date: 20150326
  Serious: No
  Sender: FDA-Public Use
  Company Number: B1005906A

PATIENT
  Age: 27 Year
  Sex: Female
  Weight: 42.91 kg

DRUGS (2)
  1. MIRTAZAPINE. [Concomitant]
     Active Substance: MIRTAZAPINE
  2. PAROXETINE HYDROCHLORIDE TABLET (PAROXETINE HYDROCHLORIDE) [Suspect]
     Active Substance: PAROXETINE HYDROCHLORIDE
     Indication: ANXIETY
     Route: 048
     Dates: start: 20130528, end: 20130616

REACTIONS (2)
  - Hepatic function abnormal [None]
  - Alanine aminotransferase increased [None]

NARRATIVE: CASE EVENT DATE: 20130615
